FAERS Safety Report 14978366 (Version 1)
Quarter: 2018Q2

REPORT INFORMATION
  Report Type: Spontaneous
  Country: US (occurrence: US)
  Receive Date: 20180515
  Receipt Date: 20180515
  Transmission Date: 20180711
  Serious: Yes (Hospitalization)
  Sender: FDA-Public Use
  Company Number: None

PATIENT
  Sex: Female

DRUGS (16)
  1. OLOPATADINE. [Concomitant]
     Active Substance: OLOPATADINE
  2. QVAR [Concomitant]
     Active Substance: BECLOMETHASONE DIPROPIONATE
  3. URSODIOL. [Concomitant]
     Active Substance: URSODIOL
  4. CREON [Concomitant]
     Active Substance: PANCRELIPASE AMYLASE\PANCRELIPASE LIPASE\PANCRELIPASE PROTEASE
  5. FLOVENT HFA [Concomitant]
     Active Substance: FLUTICASONE PROPIONATE
  6. PREDNISONE. [Concomitant]
     Active Substance: PREDNISONE
  7. TOBRAMYCIN. [Suspect]
     Active Substance: TOBRAMYCIN
     Dosage: ?          OTHER ROUTE:NEBULIZER?
     Route: 055
     Dates: start: 20170321
  8. LEVALBUTEROL. [Concomitant]
     Active Substance: LEVALBUTEROL
  9. CIPROFLOXACN [Concomitant]
     Active Substance: CIPROFLOXACIN
  10. PULMOZYME [Suspect]
     Active Substance: DORNASE ALFA
     Indication: CYSTIC FIBROSIS
     Dosage: ?          OTHER ROUTE:NEBULIZER?
     Route: 055
     Dates: start: 20170804
  11. LANSOPRAZOLE. [Concomitant]
     Active Substance: LANSOPRAZOLE
  12. SODIUM CHLOR [Concomitant]
     Active Substance: SODIUM CHLORIDE
  13. CYPROHEPTAD [Concomitant]
  14. AZITHROMYCIN ANHYDROUS. [Concomitant]
     Active Substance: AZITHROMYCIN ANHYDROUS
  15. MOMETASONE [Concomitant]
     Active Substance: MOMETASONE
  16. A-HYDROCORT [Concomitant]
     Active Substance: HYDROCORTISONE SODIUM SUCCINATE

REACTIONS (1)
  - Pseudomonas infection [None]
